FAERS Safety Report 4646249-4 (Version None)
Quarter: 2005Q2

REPORT INFORMATION
  Report Type: 
  Country: None (occurrence: None)
  Receive Date: 20050427
  Receipt Date: 20050410
  Transmission Date: 20051028
  Serious: Yes (Hospitalization)
  Sender: FDA-Public Use
  Company Number: US-ROCHE-401581

PATIENT
  Age: 43 Year
  Sex: Female

DRUGS (2)
  1. PEGASYS [Suspect]
     Indication: DRUG USE FOR UNKNOWN INDICATION
     Dosage: ROUTE REPORTED AS INJECTION.
     Route: 050
     Dates: start: 20050202, end: 20050331
  2. COPEGUS [Suspect]
     Indication: DRUG USE FOR UNKNOWN INDICATION
     Route: 048
     Dates: start: 20050202, end: 20050331

REACTIONS (4)
  - DRUG DEPENDENCE [None]
  - NECK MASS [None]
  - STRESS [None]
  - VISUAL DISTURBANCE [None]
